FAERS Safety Report 6923704-5 (Version None)
Quarter: 2010Q3

REPORT INFORMATION
  Report Type: 
  Country: None (occurrence: None)
  Receive Date: 20100813
  Receipt Date: 20100809
  Transmission Date: 20110219
  Serious: Yes (Disabling)
  Sender: FDA-Public Use
  Company Number: D0067418A

PATIENT
  Sex: Male

DRUGS (2)
  1. LAMOTRIGINE (RATIOPHARM) [Suspect]
     Indication: EPILEPSY
     Dosage: 200MG PER DAY
     Route: 048
     Dates: start: 20070101
  2. KEPPRA [Concomitant]
     Indication: EPILEPSY
     Dosage: 500MG PER DAY
     Route: 048
     Dates: start: 20080101

REACTIONS (1)
  - TEETH BRITTLE [None]
